FAERS Safety Report 4822140-5 (Version None)
Quarter: 2005Q4

REPORT INFORMATION
  Report Type: 
  Country: None (occurrence: None)
  Receive Date: 20051103
  Receipt Date: 20051026
  Transmission Date: 20060501
  Serious: Yes (Hospitalization)
  Sender: FDA-Public Use
  Company Number: 2005PV003501

PATIENT
  Age: 66 Year
  Sex: Female
  Weight: 67.586 kg

DRUGS (9)
  1. BYETTA [Suspect]
     Indication: DIABETES MELLITUS NON-INSULIN-DEPENDENT
     Dosage: SEE IMAGE
     Route: 058
     Dates: start: 20050928, end: 20051027
  2. BYETTA [Suspect]
     Indication: DIABETES MELLITUS NON-INSULIN-DEPENDENT
     Dosage: SEE IMAGE
     Route: 058
     Dates: start: 20051028
  3. AVANDIA [Concomitant]
  4. METFORMIN [Concomitant]
  5. TAPAZOLE [Concomitant]
  6. ZAROXOLYN [Concomitant]
  7. PREDNISONE [Concomitant]
  8. GLYBURIDE [Concomitant]
  9. XANAX [Concomitant]

REACTIONS (2)
  - PULMONARY EMBOLISM [None]
  - WEIGHT DECREASED [None]
